FAERS Safety Report 9731416 (Version 1)
Quarter: 2013Q4

REPORT INFORMATION
  Report Type: Spontaneous
  Country: DE (occurrence: None)
  Receive Date: 20131203
  Receipt Date: 20131203
  Transmission Date: 20140711
  Serious: Yes (Other)
  Sender: FDA-Public Use
  Company Number: 7253070

PATIENT
  Age: 23 Year
  Sex: Female

DRUGS (12)
  1. OVITRELLE [Suspect]
     Indication: IN VITRO FERTILISATION
  2. PREDNISONE [Suspect]
     Indication: IMMUNOSUPPRESSION
     Dosage: LESS THAN 15MG
  3. EUTHYROX [Suspect]
     Indication: PRODUCT USED FOR UNKNOWN INDICATION
  4. PREDNISOLONE (PREDNISOLONE) (PREDNISOLONE) [Concomitant]
  5. TACROLIMUS (TACROLIMUS) (TACROLIMUS) [Concomitant]
  6. MYCOPHENOLATE MOFETIL (MYCOPHENOLATE MOFETIL) (MYCOPHENOLATE MOFETIL) [Concomitant]
  7. AZATHIOPRINE (AZATHIOPRINE) (AZATHIOPRINE) [Concomitant]
  8. PROGESTERONE (PROGESTERONE) (50 MG) (PROGESTERONE) [Concomitant]
  9. CLEXANE (ENOXAPARIN SODIUM) (ENOXAPARIN SODIUM) [Concomitant]
  10. PENTOXIFYLLINE (PENTOXIFYLLINE) (PENTOXIFYLLINE) [Concomitant]
  11. VITAMIN E /00110501/ (TOCOPHEROL) (TOCOPHEROL) [Concomitant]
  12. DOSTINEX (CABERGOLINE) (CABERGOLINE) [Concomitant]

REACTIONS (4)
  - Urinary tract infection [None]
  - Abortion spontaneous [None]
  - Maternal exposure during pregnancy [None]
  - Pregnancy [None]
